FAERS Safety Report 6338003-2 (Version None)
Quarter: 2009Q3

REPORT INFORMATION
  Report Type: 
  Country: None (occurrence: None)
  Receive Date: 20090902
  Receipt Date: 20090824
  Transmission Date: 20100115
  Serious: Yes (Hospitalization)
  Sender: FDA-Public Use
  Company Number: NZ-PFIZER INC-2009238540

PATIENT

DRUGS (1)
  1. CHAMPIX [Suspect]

REACTIONS (1)
  - PERICARDIAL EFFUSION [None]
